FAERS Safety Report 7248308-9 (Version None)
Quarter: 2011Q1

REPORT INFORMATION
  Report Type: 
  Country: None (occurrence: None)
  Receive Date: 20110127
  Receipt Date: 20110124
  Transmission Date: 20110831
  Serious: Yes (Other)
  Sender: FDA-Public Use
  Company Number: US-PFIZER INC-2011016514

PATIENT
  Age: 55 Year
  Sex: Male
  Weight: 83.9 kg

DRUGS (9)
  1. ADVIL COLD AND SINUS [Suspect]
     Indication: NASOPHARYNGITIS
     Dosage: 200/30 MG, 3X/DAY
     Route: 048
     Dates: start: 20110101, end: 20110124
  2. ASCORBIC ACID [Concomitant]
     Indication: NASOPHARYNGITIS
     Dosage: UNK
     Route: 048
     Dates: start: 20110101
  3. MENTHOL [Concomitant]
     Indication: NASOPHARYNGITIS
     Dosage: UNK
  4. XANAX [Concomitant]
     Indication: ANXIETY
     Dosage: 25 MG, AS NEEDED
     Route: 048
  5. ADVIL COLD AND SINUS [Suspect]
     Indication: PERTUSSIS
  6. ASCORBIC ACID [Concomitant]
     Indication: PERTUSSIS
  7. HALLS DEFENSE MULTI-BLEND [Concomitant]
     Indication: NASOPHARYNGITIS
     Dosage: UNK
     Route: 048
  8. HALLS DEFENSE MULTI-BLEND [Concomitant]
     Indication: PERTUSSIS
  9. MENTHOL [Concomitant]
     Indication: PERTUSSIS

REACTIONS (2)
  - DEPRESSION [None]
  - DRY MOUTH [None]
